FAERS Safety Report 7157167-4 (Version None)
Quarter: 2010Q4

REPORT INFORMATION
  Report Type: 
  Country: None (occurrence: None)
  Receive Date: 20101214
  Receipt Date: 20091215
  Transmission Date: 20110411
  Serious: No
  Sender: FDA-Public Use
  Company Number: US-ASTRAZENECA-2009SE32118

PATIENT
  Age: 63 Year
  Sex: Male
  Weight: 86.2 kg

DRUGS (1)
  1. CRESTOR [Suspect]
     Dosage: DAILY
     Route: 048
     Dates: start: 20090901

REACTIONS (3)
  - DERMATITIS ACNEIFORM [None]
  - DRY SKIN [None]
  - PRURITUS GENERALISED [None]
